FAERS Safety Report 20168096 (Version 2)
Quarter: 2022Q1

REPORT INFORMATION
  Report Type: Spontaneous
  Country: JP (occurrence: JP)
  Receive Date: 20211210
  Receipt Date: 20220103
  Transmission Date: 20220423
  Serious: Yes (Other)
  Sender: FDA-Public Use
  Company Number: JP-BRISTOL-MYERS SQUIBB COMPANY-BMS-2021-099715

PATIENT
  Age: 80 Year
  Sex: Female
  Weight: 64 kg

DRUGS (3)
  1. ORENCIA [Suspect]
     Active Substance: ABATACEPT
     Indication: Rheumatoid arthritis
     Dosage: 3 DOSAGE FORM
     Route: 041
     Dates: start: 2017
  2. ORENCIA [Suspect]
     Active Substance: ABATACEPT
     Dosage: 2 DOSAGE FORM, Q4WK
     Route: 041
     Dates: start: 20180517
  3. METHOTREXATE [Concomitant]
     Active Substance: METHOTREXATE
     Indication: Rheumatoid arthritis
     Dosage: 4 MILLIGRAM
     Route: 065
     Dates: start: 20180517, end: 20200317

REACTIONS (4)
  - Hepatitis B reactivation [Recovered/Resolved]
  - Hepatitis B DNA assay positive [Recovered/Resolved]
  - Hepatitis B DNA increased [Recovered/Resolved]
  - Treatment noncompliance [Unknown]

NARRATIVE: CASE EVENT DATE: 20190601
